FAERS Safety Report 24436407 (Version 1)
Quarter: 2024Q4

REPORT INFORMATION
  Report Type: Spontaneous
  Country: FR (occurrence: FR)
  Receive Date: 20241015
  Receipt Date: 20241015
  Transmission Date: 20250115
  Serious: Yes (Other)
  Sender: SANOFI AVENTIS
  Company Number: None

PATIENT
  Age: 41 Year
  Sex: Female

DRUGS (2)
  1. MORPHINE HYDROCHLORIDE [Suspect]
     Active Substance: MORPHINE HYDROCHLORIDE
     Indication: Pain
     Dosage: 3 MG, 1X
     Route: 042
     Dates: start: 20230706, end: 20230706
  2. OXALIPLATIN [Suspect]
     Active Substance: OXALIPLATIN
     Indication: Metastases to liver
     Dosage: 85 MG/M2, 1X
     Route: 042
     Dates: start: 20230706, end: 20230706

REACTIONS (3)
  - Hypotension [Recovered/Resolved]
  - Respiratory distress [Recovered/Resolved]
  - Urticaria [Recovered/Resolved]

NARRATIVE: CASE EVENT DATE: 20230706
